FAERS Safety Report 19428406 (Version 4)
Quarter: 2021Q3

REPORT INFORMATION
  Report Type: Spontaneous
  Country: US (occurrence: US)
  Receive Date: 20210617
  Receipt Date: 20210720
  Transmission Date: 20211014
  Serious: Yes (Hospitalization, Other)
  Sender: FDA-Public Use
  Company Number: US-SA-2021SA198855

PATIENT
  Sex: Male

DRUGS (1)
  1. DUPIXENT [Suspect]
     Active Substance: DUPILUMAB
     Indication: DERMATITIS ATOPIC
     Dosage: 300 MG, QOW
     Route: 058
     Dates: start: 20210126, end: 202105

REACTIONS (8)
  - Oedema peripheral [Unknown]
  - Drug ineffective [Unknown]
  - Oedema [Not Recovered/Not Resolved]
  - Skin disorder [Unknown]
  - Arthropathy [Not Recovered/Not Resolved]
  - Staphylococcal infection [Unknown]
  - T-cell lymphoma [Unknown]
  - Condition aggravated [Unknown]

NARRATIVE: CASE EVENT DATE: 2021
